FAERS Safety Report 14992861 (Version 2)
Quarter: 2019Q1

REPORT INFORMATION
  Report Type: Spontaneous
  Country: US (occurrence: US)
  Receive Date: 20180609
  Receipt Date: 20190225
  Transmission Date: 20190417
  Serious: Yes (Death)
  Sender: FDA-Public Use
  Company Number: US-JNJFOC-20180539334

PATIENT
  Age: 83 Year
  Sex: Male
  Weight: 77.11 kg

DRUGS (1)
  1. ZYTIGA [Suspect]
     Active Substance: ABIRATERONE ACETATE
     Indication: PRODUCT USED FOR UNKNOWN INDICATION
     Route: 048
     Dates: start: 20180306

REACTIONS (2)
  - Weight decreased [Unknown]
  - Death [Fatal]

NARRATIVE: CASE EVENT DATE: 20180529
